FAERS Safety Report 18963685 (Version 1)
Quarter: 2021Q1

REPORT INFORMATION
  Report Type: Spontaneous
  Country: US (occurrence: US)
  Receive Date: 20210303
  Receipt Date: 20210303
  Transmission Date: 20210420
  Serious: Yes (Other)
  Sender: FDA-Public Use
  Company Number: US-SA-2021SA069931

PATIENT
  Sex: Female

DRUGS (7)
  1. TIZANIDINE HCL [Concomitant]
     Active Substance: TIZANIDINE HYDROCHLORIDE
  2. VITAMIN B12 [VITAMIN B12 NOS] [Concomitant]
     Active Substance: CYANOCOBALAMIN
  3. ACTHAR [Concomitant]
     Active Substance: CORTICOTROPIN
  4. VITAMIN K2 [MENAQUINONE] [Concomitant]
     Active Substance: MENAQUINONE 6
  5. VITAMIN D3 [Concomitant]
     Active Substance: CHOLECALCIFEROL
  6. RIZATRIPTAN. [Concomitant]
     Active Substance: RIZATRIPTAN
  7. AUBAGIO [Suspect]
     Active Substance: TERIFLUNOMIDE
     Indication: MULTIPLE SCLEROSIS
     Dosage: 14 MG, QD (1 TABLET)
     Route: 048
     Dates: start: 202010

REACTIONS (2)
  - Mobility decreased [Unknown]
  - Multiple sclerosis relapse [Unknown]
